FAERS Safety Report 4561282-9 (Version None)
Quarter: 2005Q1

REPORT INFORMATION
  Report Type: 
  Country: None (occurrence: None)
  Receive Date: 20050121
  Receipt Date: 20050105
  Transmission Date: 20050727
  Serious: Yes (Death, Hospitalization)
  Sender: FDA-Public Use
  Company Number: 2004AC00748

PATIENT
  Age: 73 Year
  Sex: Female

DRUGS (10)
  1. CRESTOR [Suspect]
     Dosage: 40 MG DAILY PO
     Route: 048
     Dates: start: 20030901, end: 20040710
  2. CRESTOR [Suspect]
     Dosage: 20 MG DAILY PO
     Route: 048
     Dates: start: 20040710, end: 20040929
  3. REMERON [Suspect]
     Dosage: 30 MG DAILY PO
     Route: 048
     Dates: start: 20040726, end: 20040929
  4. EFFEXOR XR [Suspect]
     Dosage: 150 MG DAILY PO
     Route: 048
     Dates: start: 20040502, end: 20040723
  5. EFFEXOR XR [Suspect]
     Dosage: 150 MG PRN PO
     Route: 048
     Dates: start: 20040723, end: 20040929
  6. PANTOZOL [Concomitant]
  7. NORFLOXACIN [Concomitant]
  8. NEUROLEPTICS [Concomitant]
  9. EZETROL [Concomitant]
  10. ESTRADIOL [Concomitant]

REACTIONS (11)
  - ABDOMINAL PAIN [None]
  - DEHYDRATION [None]
  - DRUG INTERACTION [None]
  - GENERAL PHYSICAL HEALTH DETERIORATION [None]
  - HYPOKALAEMIA [None]
  - HYPONATRAEMIA [None]
  - INFECTION [None]
  - NEUROLEPTIC MALIGNANT SYNDROME [None]
  - PNEUMONIA [None]
  - RESPIRATION ABNORMAL [None]
  - RHABDOMYOLYSIS [None]
